FAERS Safety Report 4325124-9 (Version None)
Quarter: 2004Q1

REPORT INFORMATION
  Report Type: 
  Country: None (occurrence: None)
  Receive Date: 20040323
  Receipt Date: 20040115
  Transmission Date: 20041129
  Serious: No
  Sender: FDA-Public Use
  Company Number: USA040155777

PATIENT
  Sex: Male
  Weight: 102 kg

DRUGS (1)
  1. CIALIS [Suspect]
     Dosage: 20 MG/AS NEEDED
     Dates: start: 20031101

REACTIONS (5)
  - FLUSHING [None]
  - HEADACHE [None]
  - NASAL CONGESTION [None]
  - PHOTOPHOBIA [None]
  - RHINORRHOEA [None]
